FAERS Safety Report 5705475-3 (Version None)
Quarter: 2008Q2

REPORT INFORMATION
  Report Type: 
  Country: None (occurrence: None)
  Receive Date: 20080411
  Receipt Date: 20080404
  Transmission Date: 20081010
  Serious: Yes (Other)
  Sender: FDA-Public Use
  Company Number: 2008008527

PATIENT
  Sex: Female

DRUGS (2)
  1. VISINE II EYE DROPS [Suspect]
     Dosage: OPHTHALMIC
     Route: 047
     Dates: start: 20080101, end: 20080101
  2. LISINOPRIL [Concomitant]

REACTIONS (3)
  - INCORRECT ROUTE OF DRUG ADMINISTRATION [None]
  - MALAISE [None]
  - THROAT TIGHTNESS [None]
